FAERS Safety Report 14023453 (Version 1)
Quarter: 2017Q3

REPORT INFORMATION
  Report Type: Spontaneous
  Country: US (occurrence: US)
  Receive Date: 20170928
  Receipt Date: 20170928
  Transmission Date: 20171128
  Serious: No
  Sender: FDA-Public Use
  Company Number: US-SA-2016SA211819

PATIENT
  Age: 33 Year
  Sex: Female

DRUGS (8)
  1. TOPAMAX [Concomitant]
     Active Substance: TOPIRAMATE
  2. PRIMIDONE. [Concomitant]
     Active Substance: PRIMIDONE
  3. VENLAFAXINE HYDROCHLORIDE. [Concomitant]
     Active Substance: VENLAFAXINE HYDROCHLORIDE
  4. AUBAGIO [Suspect]
     Active Substance: TERIFLUNOMIDE
     Route: 048
  5. COGENTIN [Concomitant]
     Active Substance: BENZTROPINE MESYLATE
  6. IMITREX [Concomitant]
     Active Substance: SUMATRIPTAN SUCCINATE
  7. ALEVE [Concomitant]
     Active Substance: NAPROXEN SODIUM
  8. XANAX [Concomitant]
     Active Substance: ALPRAZOLAM

REACTIONS (1)
  - Alopecia [Unknown]
